FAERS Safety Report 24112379 (Version 1)
Quarter: 2024Q3

REPORT INFORMATION
  Report Type: Report from Study
  Country: US (occurrence: None)
  Receive Date: 20240719
  Receipt Date: 20240719
  Transmission Date: 20241017
  Serious: Yes (Hospitalization, Other)
  Sender: ASTRAZENECA
  Company Number: 2020SE76312

PATIENT
  Sex: Male

DRUGS (1)
  1. LYNPARZA [Suspect]
     Active Substance: OLAPARIB
     Indication: Prostate cancer
     Route: 048
     Dates: start: 20200522

REACTIONS (9)
  - Pulmonary oedema [Unknown]
  - Bronchiectasis [Unknown]
  - Right ventricular failure [Unknown]
  - Interstitial lung disease [Unknown]
  - Diarrhoea [Recovered/Resolved]
  - Peripheral swelling [Unknown]
  - Feeling abnormal [Unknown]
  - Loss of personal independence in daily activities [Unknown]
  - Asthenia [Unknown]
